FAERS Safety Report 10271370 (Version 5)
Quarter: 2014Q4

REPORT INFORMATION
  Report Type: Spontaneous
  Country: PT (occurrence: PT)
  Receive Date: 20140701
  Receipt Date: 20141113
  Transmission Date: 20150528
  Serious: Yes (Other)
  Sender: FDA-Public Use
  Company Number: PT-ASTELLAS-2014US007347

PATIENT
  Age: 65 Year
  Sex: Female

DRUGS (5)
  1. ERLOTINIB [Suspect]
     Active Substance: ERLOTINIB
     Route: 048
     Dates: start: 20130819, end: 20130903
  2. ERLOTINIB [Suspect]
     Active Substance: ERLOTINIB
     Route: 048
     Dates: start: 20131019, end: 20140528
  3. ERLOTINIB [Suspect]
     Active Substance: ERLOTINIB
     Route: 048
     Dates: start: 20140618, end: 201410
  4. ERLOTINIB [Suspect]
     Active Substance: ERLOTINIB
     Indication: NON-SMALL CELL LUNG CANCER
     Route: 048
     Dates: start: 20130722, end: 20130801
  5. ERLOTINIB [Suspect]
     Active Substance: ERLOTINIB
     Route: 048
     Dates: start: 20130909, end: 20130916

REACTIONS (11)
  - Conjunctivitis [Recovered/Resolved]
  - Conjunctivitis allergic [Recovered/Resolved]
  - Keratitis [Recovered/Resolved]
  - Injury corneal [Recovered/Resolved]
  - Hyperaemia [Recovered/Resolved]
  - Pigmentation buccal [Not Recovered/Not Resolved]
  - Cataract [Unknown]
  - Skin ulcer [Not Recovered/Not Resolved]
  - Paronychia [Not Recovered/Not Resolved]
  - Keratopathy [Unknown]
  - Rash [Recovered/Resolved]

NARRATIVE: CASE EVENT DATE: 20130801
